FAERS Safety Report 9885104 (Version 1)
Quarter: 2014Q1

REPORT INFORMATION
  Report Type: Spontaneous
  Country: US (occurrence: US)
  Receive Date: 20140210
  Receipt Date: 20140210
  Transmission Date: 20141002
  Serious: Yes (Hospitalization, Other)
  Sender: FDA-Public Use
  Company Number: US-JNJFOC-20140201782

PATIENT
  Sex: Female
  Weight: 65.77 kg

DRUGS (6)
  1. TOPAMAX [Suspect]
     Indication: CONVULSION
     Route: 048
     Dates: end: 201312
  2. TOPAMAX [Suspect]
     Indication: CONVULSION
     Route: 048
     Dates: start: 1998
  3. TOPIRAMATE [Suspect]
     Indication: CONVULSION
     Route: 048
  4. TYLENOL [Suspect]
     Route: 048
  5. TYLENOL [Suspect]
     Indication: PRODUCT USED FOR UNKNOWN INDICATION
     Route: 048
  6. LAMICTAL [Concomitant]
     Indication: CONVULSION
     Route: 065

REACTIONS (5)
  - Convulsion [Recovered/Resolved]
  - Renal pain [Not Recovered/Not Resolved]
  - Nephrolithiasis [Not Recovered/Not Resolved]
  - Haemorrhage [Recovered/Resolved]
  - Adverse drug reaction [Unknown]
